FAERS Safety Report 6738177-5 (Version None)
Quarter: 2010Q2

REPORT INFORMATION
  Report Type: 
  Country: None (occurrence: None)
  Receive Date: 20100520
  Receipt Date: 20100511
  Transmission Date: 20101027
  Serious: Yes (Death, Hospitalization)
  Sender: FDA-Public Use
  Company Number: 8040289

PATIENT
  Sex: Male
  Weight: 110.2 kg

DRUGS (12)
  1. CERTOLIZUMAB PEGOL [Suspect]
     Indication: RHEUMATOID ARTHRITIS
     Dosage: (SUBCUTANEOUS)
     Route: 058
     Dates: start: 20081111, end: 20081125
  2. METHOTREXATE [Concomitant]
  3. PREDNISONE TAB [Concomitant]
  4. FOLIC ACID [Concomitant]
  5. LANTUS [Concomitant]
  6. ACTOS [Concomitant]
  7. GLYBURIDE [Concomitant]
  8. OMEPRAZOLE [Concomitant]
  9. METFORMIN HYDROCHLORIDE [Concomitant]
  10. ROSUVASTATIN [Concomitant]
  11. 4-WAY NASAL [Concomitant]
  12. LISINOPRIL [Concomitant]

REACTIONS (29)
  - ALCOHOL USE [None]
  - BACK PAIN [None]
  - BETA HAEMOLYTIC STREPTOCOCCAL INFECTION [None]
  - BLOOD ALBUMIN DECREASED [None]
  - BLOOD GLUCOSE INCREASED [None]
  - BLOOD PRESSURE SYSTOLIC INCREASED [None]
  - BRADYCARDIA [None]
  - CANDIDIASIS [None]
  - DIABETIC VASCULAR DISORDER [None]
  - DIALYSIS [None]
  - DISEASE RECURRENCE [None]
  - DYSSTASIA [None]
  - EFFUSION [None]
  - HAEMATOCRIT DECREASED [None]
  - HAEMOGLOBIN DECREASED [None]
  - HEART RATE INCREASED [None]
  - HYPOTENSION [None]
  - LETHARGY [None]
  - PAIN IN EXTREMITY [None]
  - PNEUMONIA ASPIRATION [None]
  - PNEUMONIA NECROTISING [None]
  - REFUSAL OF TREATMENT BY PATIENT [None]
  - RENAL FAILURE ACUTE [None]
  - RESPIRATORY FAILURE [None]
  - SEPSIS [None]
  - SINUS TACHYCARDIA [None]
  - SPUTUM CULTURE POSITIVE [None]
  - TREATMENT NONCOMPLIANCE [None]
  - VOMITING [None]
